FAERS Safety Report 15475320 (Version 1)
Quarter: 2018Q4

REPORT INFORMATION
  Report Type: Spontaneous
  Country: US (occurrence: US)
  Receive Date: 20181008
  Receipt Date: 20181008
  Transmission Date: 20190205
  Serious: No
  Sender: FDA-Public Use
  Company Number: US-CHILTERN-US-2018-000063

PATIENT
  Age: 93 Year
  Sex: Female

DRUGS (4)
  1. REFRESH                            /00007002/ [Concomitant]
     Indication: EYE LUBRICATION THERAPY
     Dosage: UNK, QD
     Route: 047
  2. TRAVATAN [Concomitant]
     Active Substance: TRAVOPROST
     Dosage: UNK
     Route: 047
  3. BETIMOL [Concomitant]
     Active Substance: TIMOLOL
     Dosage: UNK UNK, QD
     Route: 047
  4. RHOPRESSA [Suspect]
     Active Substance: NETARSUDIL MESYLATE
     Indication: GLAUCOMA
     Dosage: 1 GTT, QD
     Route: 047
     Dates: start: 20180419, end: 20180701

REACTIONS (1)
  - Eye pain [Recovered/Resolved]

NARRATIVE: CASE EVENT DATE: 201806
